FAERS Safety Report 4278944-3 (Version None)
Quarter: 2004Q1

REPORT INFORMATION
  Report Type: 
  Country: None (occurrence: None)
  Receive Date: 20040126
  Receipt Date: 20011212
  Transmission Date: 20041129
  Serious: Yes (Hospitalization)
  Sender: FDA-Public Use
  Company Number: FR-ROCHE-303416

PATIENT
  Age: 35 Year
  Sex: Male
  Weight: 72 kg

DRUGS (5)
  1. MYCOPHENOLATE MOFETIL [Suspect]
     Route: 048
     Dates: start: 20000623
  2. NEORAL [Suspect]
     Route: 048
     Dates: start: 19890615
  3. CORTANCYL [Suspect]
     Route: 048
     Dates: start: 19890615
  4. PERASTINE [Concomitant]
     Route: 048
     Dates: start: 19890615
  5. RENITEC [Concomitant]
     Route: 048

REACTIONS (1)
  - PHLEBITIS [None]
